FAERS Safety Report 5385094-1 (Version None)
Quarter: 2007Q3

REPORT INFORMATION
  Report Type: 
  Country: None (occurrence: None)
  Receive Date: 20070705
  Receipt Date: 20070705
  Transmission Date: 20080115
  Serious: Yes (Other)
  Sender: FDA-Public Use
  Company Number: None

PATIENT
  Age: 66 Year
  Sex: Female

DRUGS (2)
  1. HYDROXYCHLOROQUINE TABS 698; 200MG WATSON [Suspect]
     Indication: AUTOIMMUNE DISORDER
     Dosage: TAKE ONE TWICE A DAY
  2. HYDROXYCHLOROQUINE TABS 698; 200MG WATSON [Suspect]
     Indication: INFLAMMATION
     Dosage: TAKE ONE TWICE A DAY

REACTIONS (4)
  - DYSGEUSIA [None]
  - NAUSEA [None]
  - PHARMACEUTICAL PRODUCT COMPLAINT [None]
  - VOMITING [None]
